FAERS Safety Report 10101674 (Version 1)
Quarter: 2014Q2

REPORT INFORMATION
  Report Type: Spontaneous
  Country: CO (occurrence: CO)
  Receive Date: 20140424
  Receipt Date: 20140424
  Transmission Date: 20141212
  Serious: Yes (Hospitalization, Other)
  Sender: FDA-Public Use
  Company Number: CO-JNJFOC-20140413156

PATIENT
  Age: 32 Year
  Sex: Female

DRUGS (4)
  1. INFLIXIMAB, RECOMBINANT [Suspect]
     Indication: TAKAYASU^S ARTERITIS
     Route: 042
  2. CYCLOSPORINE [Suspect]
     Indication: TAKAYASU^S ARTERITIS
     Route: 065
  3. METHOTREXATE [Suspect]
     Indication: TAKAYASU^S ARTERITIS
     Route: 065
  4. PREDNISONE [Suspect]
     Indication: TAKAYASU^S ARTERITIS
     Route: 065

REACTIONS (3)
  - Pulmonary tuberculosis [Unknown]
  - Takayasu^s arteritis [Recovered/Resolved]
  - Off label use [Unknown]
